FAERS Safety Report 5476116-8 (Version None)
Quarter: 2007Q4

REPORT INFORMATION
  Report Type: 
  Country: None (occurrence: None)
  Receive Date: 20071003
  Receipt Date: 20070926
  Transmission Date: 20080405
  Serious: Yes (Hospitalization)
  Sender: FDA-Public Use
  Company Number: FR-SANOFI-SYNTHELABO-A02200702660

PATIENT
  Sex: Female

DRUGS (4)
  1. SOLU-MEDROL [Concomitant]
     Indication: PREMEDICATION
     Route: 042
  2. ZOFRAN [Concomitant]
     Indication: PREMEDICATION
     Dosage: UNK
     Route: 042
     Dates: start: 20070807, end: 20070807
  3. ELOXATIN [Suspect]
     Indication: NEOPLASM MALIGNANT
     Route: 042
     Dates: start: 20070807, end: 20070807
  4. PRIMPERAN [Concomitant]
     Route: 042

REACTIONS (5)
  - PARAESTHESIA [None]
  - PHARMACEUTICAL PRODUCT COMPLAINT [None]
  - PRURITUS [None]
  - RASH [None]
  - SUFFOCATION FEELING [None]
